FAERS Safety Report 6725506-1 (Version None)
Quarter: 2010Q2

REPORT INFORMATION
  Report Type: 
  Country: None (occurrence: None)
  Receive Date: 20100514
  Receipt Date: 20100505
  Transmission Date: 20101027
  Serious: Yes (Hospitalization, Other)
  Sender: FDA-Public Use
  Company Number: FR-AMGEN-QUU411117

PATIENT
  Age: 62 Year
  Sex: Female

DRUGS (2)
  1. ENBREL [Suspect]
     Indication: PSORIATIC ARTHROPATHY
     Dosage: UNKNOWN
     Route: 058
     Dates: start: 20090101
  2. CORTICOSTEROIDS [Suspect]
     Dates: start: 20090101

REACTIONS (3)
  - CONDITION AGGRAVATED [None]
  - PSORIATIC ARTHROPATHY [None]
  - PULMONARY EMBOLISM [None]
